FAERS Safety Report 26140417 (Version 1)
Quarter: 2025Q4

REPORT INFORMATION
  Report Type: Spontaneous
  Country: US (occurrence: None)
  Receive Date: 20251210
  Receipt Date: 20251210
  Transmission Date: 20260117
  Serious: No
  Sender: FDA-CTU
  Company Number: None

PATIENT
  Age: 69 Year
  Sex: Male
  Weight: 95.85 kg

DRUGS (8)
  1. ALENDRONATE [Suspect]
     Active Substance: ALENDRONATE SODIUM
     Indication: Osteoporosis
     Dosage: OTHER QUANTITY : 1 TABLET(S);?OTHER FREQUENCY : ONCE A WEEK;
     Route: 048
  2. CRESTOR [Concomitant]
     Active Substance: ROSUVASTATIN CALCIUM
  3. VALSARTAN [Concomitant]
     Active Substance: VALSARTAN
  4. LUPRON [Concomitant]
     Active Substance: LEUPROLIDE ACETATE
  5. NORVASC [Concomitant]
     Active Substance: AMLODIPINE BESYLATE
  6. XTANDI [Concomitant]
     Active Substance: ENZALUTAMIDE
  7. CALCIUM [Concomitant]
     Active Substance: CALCIUM
  8. D [Concomitant]

REACTIONS (2)
  - Arthralgia [None]
  - Gait inability [None]

NARRATIVE: CASE EVENT DATE: 20251209
